FAERS Safety Report 6920160-8 (Version None)
Quarter: 2010Q3

REPORT INFORMATION
  Report Type: 
  Country: None (occurrence: None)
  Receive Date: 20100809
  Receipt Date: 20100716
  Transmission Date: 20110219
  Serious: Yes (Hospitalization)
  Sender: FDA-Public Use
  Company Number: JP-SOLVAY-00310004526

PATIENT
  Age: 60 Year
  Sex: Female

DRUGS (2)
  1. FLUVOXAMINE MALEATE [Suspect]
     Indication: DEPRESSION
     Dosage: ORAL
     Route: 048
  2. DEPAS (ETIZOLAM) [Concomitant]

REACTIONS (1)
  - PLATELET COUNT DECREASED [None]
